FAERS Safety Report 6976555-X (Version None)
Quarter: 2010Q3

REPORT INFORMATION
  Report Type: 
  Country: None (occurrence: None)
  Receive Date: 20100910
  Receipt Date: 20100831
  Transmission Date: 20110219
  Serious: Yes (Life-Threatening)
  Sender: FDA-Public Use
  Company Number: US-PFIZER INC-2010109961

PATIENT
  Sex: Female
  Weight: 71.202 kg

DRUGS (3)
  1. OGEN [Suspect]
     Indication: HORMONE REPLACEMENT THERAPY
     Dosage: 1.25 MG, UNK
     Dates: start: 19831101
  2. OGEN [Suspect]
     Dosage: 0.625 MG, UNK
     Dates: start: 20040101, end: 20100823
  3. MULTI-VITAMINS [Concomitant]
     Indication: SUPPLEMENTATION THERAPY
     Dosage: UNK

REACTIONS (3)
  - INSOMNIA [None]
  - IRRITABILITY [None]
  - MYOCARDIAL INFARCTION [None]
